FAERS Safety Report 8572147-X (Version None)
Quarter: 2012Q3

REPORT INFORMATION
  Report Type: 
  Country: None (occurrence: None)
  Receive Date: 20120806
  Receipt Date: 20120725
  Transmission Date: 20120928
  Serious: Yes (Other)
  Sender: FDA-Public Use
  Company Number: ES-ASTRAZENECA-2012SE53259

PATIENT
  Age: 23 Year
  Sex: Female

DRUGS (1)
  1. EMLA [Suspect]
     Indication: DEPILATION
     Dosage: 25 MG/G CREAM, 1 TUBE OF 30 G
     Route: 061
     Dates: start: 20120626, end: 20120627

REACTIONS (5)
  - DYSAESTHESIA [None]
  - PARAESTHESIA [None]
  - ERYTHEMA [None]
  - DYSPNOEA [None]
  - CYANOSIS [None]
